FAERS Safety Report 22595333 (Version 1)
Quarter: 2023Q2

REPORT INFORMATION
  Report Type: Spontaneous
  Country: US (occurrence: None)
  Receive Date: 20230613
  Receipt Date: 20230613
  Transmission Date: 20230722
  Serious: No
  Sender: FDA-Public Use
  Company Number: 2023A131312

PATIENT
  Sex: Female

DRUGS (3)
  1. ROSUVASTATIN [Suspect]
     Active Substance: ROSUVASTATIN
     Route: 048
  2. VYNDAMAX [Suspect]
     Active Substance: TAFAMIDIS
  3. FISH OIL [Suspect]
     Active Substance: FISH OIL

REACTIONS (5)
  - Pain [Unknown]
  - Swelling [Unknown]
  - Erythema [Unknown]
  - Myopathy [Unknown]
  - Drug interaction [Unknown]
